FAERS Safety Report 7311321-7 (Version None)
Quarter: 2011Q1

REPORT INFORMATION
  Report Type: 
  Country: None (occurrence: None)
  Receive Date: 20110224
  Receipt Date: 20101112
  Transmission Date: 20110831
  Serious: Yes (Death, Disabling)
  Sender: FDA-Public Use
  Company Number: JP-ACTELION-A-CH2010-41635

PATIENT
  Sex: Male
  Weight: 54 kg

DRUGS (14)
  1. TRACLEER [Suspect]
     Dosage: 62.5 MG, BID
     Route: 048
     Dates: start: 20091112, end: 20091116
  2. VERAPAMIL HYDROCHLORIDE [Concomitant]
  3. TRACLEER [Suspect]
     Indication: PULMONARY ARTERIAL HYPERTENSION
     Dosage: 125 MG, BID
     Route: 048
     Dates: start: 20091117, end: 20100911
  4. AMLODIPINE BESYLATE [Concomitant]
  5. DIGOXIN [Concomitant]
  6. OXYGEN [Concomitant]
  7. ALLOPURINOL [Concomitant]
  8. BERAPROST SODIUM [Concomitant]
  9. WARFARIN POTASSIUM [Concomitant]
  10. ENALAPRIL MALEATE [Concomitant]
  11. MANIDIPINE HYDROCHLORIDE [Concomitant]
  12. FUROSEMIDE [Concomitant]
  13. FERROUS SODIUM CITRATE [Concomitant]
  14. NIFEDIPINE [Concomitant]

REACTIONS (7)
  - RIGHT VENTRICULAR FAILURE [None]
  - PNEUMONIA [None]
  - ANURIA [None]
  - DRUG EFFECT DECREASED [None]
  - MECHANICAL VENTILATION [None]
  - CONCOMITANT DISEASE AGGRAVATED [None]
  - CARDIAC FAILURE CONGESTIVE [None]
